FAERS Safety Report 21336294 (Version 6)
Quarter: 2022Q4

REPORT INFORMATION
  Report Type: Spontaneous
  Country: US (occurrence: US)
  Receive Date: 20220915
  Receipt Date: 20221209
  Transmission Date: 20230113
  Serious: Yes (Hospitalization)
  Sender: FDA-Public Use
  Company Number: US-UNITED THERAPEUTICS-UNT-2022-016381

PATIENT
  Sex: Female

DRUGS (10)
  1. REMODULIN [Suspect]
     Active Substance: TREPROSTINIL
     Indication: Pulmonary arterial hypertension
     Dosage: UNK, CONTINUING
     Route: 041
     Dates: start: 20220628
  2. REMODULIN [Suspect]
     Active Substance: TREPROSTINIL
     Dosage: 0.015 ?G/KG, CONTINUING
     Route: 041
     Dates: start: 2022
  3. REMODULIN [Suspect]
     Active Substance: TREPROSTINIL
     Dosage: 0.019 ?G/KG, CONTINUING
     Route: 041
     Dates: start: 2022
  4. REMODULIN [Suspect]
     Active Substance: TREPROSTINIL
     Dosage: 0.023 ?G/KG, CONTINUING
     Route: 041
     Dates: start: 2022
  5. REMODULIN [Suspect]
     Active Substance: TREPROSTINIL
     Dosage: 0.024 ?G/KG, CONTINUING
     Route: 041
     Dates: start: 2022
  6. REMODULIN [Suspect]
     Active Substance: TREPROSTINIL
     Dosage: 0.029 ?G/KG, CONTINUING
     Route: 041
     Dates: start: 2022
  7. REMODULIN [Suspect]
     Active Substance: TREPROSTINIL
     Dosage: 0.031 ?G/KG, CONTINUING
     Route: 041
     Dates: start: 2022
  8. REMODULIN [Suspect]
     Active Substance: TREPROSTINIL
     Dosage: 0.033 ?G/KG, CONTINUING
     Route: 041
     Dates: start: 2022
  9. TYLENOL [Suspect]
     Active Substance: ACETAMINOPHEN
     Indication: Pain in extremity
     Dosage: UNK
     Route: 065
     Dates: start: 2022
  10. GABAPENTIN [Suspect]
     Active Substance: GABAPENTIN
     Indication: Pain in extremity
     Dosage: UNK
     Route: 065
     Dates: start: 2022

REACTIONS (15)
  - Dyspnoea [Unknown]
  - Oedema [Unknown]
  - Diarrhoea [Unknown]
  - Pain in jaw [Recovered/Resolved]
  - Swelling [Recovered/Resolved]
  - Pain in extremity [Unknown]
  - Headache [Not Recovered/Not Resolved]
  - Peripheral swelling [Not Recovered/Not Resolved]
  - Nausea [Unknown]
  - Joint swelling [Unknown]
  - Photopsia [Unknown]
  - Fluid retention [Unknown]
  - Dermatitis contact [Unknown]
  - Therapy non-responder [Unknown]
  - Neuralgia [Unknown]

NARRATIVE: CASE EVENT DATE: 20220101
